FAERS Safety Report 5073572-4 (Version None)
Quarter: 2006Q3

REPORT INFORMATION
  Report Type: 
  Country: None (occurrence: None)
  Receive Date: 20060803
  Receipt Date: 20060719
  Transmission Date: 20061208
  Serious: Yes (Death)
  Sender: FDA-Public Use
  Company Number: ADE06020-L

PATIENT

DRUGS (9)
  1. CYCLOSPORINE [Suspect]
     Dosage: 100-125 NG/ML, REDUCED TO 50-100NG/ML AT 3 MO.
  2. THYMOGLOBULIN [Concomitant]
  3. SIROLIMUS [Concomitant]
  4. METHYLPREDNISOLONE [Concomitant]
  5. CEFAZOLIN [Concomitant]
  6. TRIMETHOPRIM + SULFAMETHOXAZOLE [Concomitant]
  7. GANCICLOVIR [Concomitant]
  8. IMMUNE GLOBULIN (HUMAN) [Concomitant]
  9. OCTREOTIDE ACETATE [Concomitant]

REACTIONS (1)
  - FUNGAL SEPSIS [None]
